FAERS Safety Report 22179723 (Version 2)
Quarter: 2023Q2

REPORT INFORMATION
  Report Type: Spontaneous
  Country: FR (occurrence: FR)
  Receive Date: 20230406
  Receipt Date: 20230503
  Transmission Date: 20230722
  Serious: Yes (Hospitalization, Congenital Anomaly, Other)
  Sender: FDA-Public Use
  Company Number: None

PATIENT
  Sex: Male
  Weight: 3.425 kg

DRUGS (3)
  1. ARAVA [Suspect]
     Active Substance: LEFLUNOMIDE
     Indication: Rheumatoid arthritis
     Dosage: 20 MG, QD
     Route: 064
     Dates: end: 202208
  2. ALCOHOL [Suspect]
     Active Substance: ALCOHOL
     Dosage: FESTIVE ALCOHOL EVERY WEEKEND (SUP 6IU/OCCASION)
     Route: 065
     Dates: end: 202208
  3. ORENCIA [Concomitant]
     Active Substance: ABATACEPT
     Indication: Rheumatoid arthritis
     Dosage: 1 TREATMENT PER MONTH (500MG)
     Route: 064
     Dates: end: 20221004

REACTIONS (5)
  - Immature respiratory system [Recovered/Resolved]
  - Hypertonia neonatal [Recovering/Resolving]
  - Retrognathia [Not Recovered/Not Resolved]
  - Scaphocephaly [Not Recovered/Not Resolved]
  - Agitation neonatal [Recovering/Resolving]

NARRATIVE: CASE EVENT DATE: 20230117
